FAERS Safety Report 25422833 (Version 1)
Quarter: 2025Q2

REPORT INFORMATION
  Report Type: Spontaneous
  Country: US (occurrence: US)
  Receive Date: 20250611
  Receipt Date: 20250611
  Transmission Date: 20250717
  Serious: No
  Sender: MERCK SHARP & DOHME LLC
  Company Number: US-009507513-2286699

PATIENT
  Sex: Female
  Weight: 113.4 kg

DRUGS (3)
  1. BRIDION [Suspect]
     Active Substance: SUGAMMADEX SODIUM
     Dates: start: 2023
  2. BRIDION [Suspect]
     Active Substance: SUGAMMADEX SODIUM
     Dates: start: 2023
  3. ROCURONIUM BROMIDE [Suspect]
     Active Substance: ROCURONIUM BROMIDE
     Indication: Endotracheal intubation
     Route: 065
     Dates: start: 2023

REACTIONS (3)
  - PCO2 increased [Unknown]
  - Recurrence of neuromuscular blockade [Recovered/Resolved]
  - Incorrect dose administered [Unknown]

NARRATIVE: CASE EVENT DATE: 20230101
